FAERS Safety Report 10030822 (Version 1)
Quarter: 2014Q1

REPORT INFORMATION
  Report Type: Spontaneous
  Country: US (occurrence: US)
  Receive Date: 20140323
  Receipt Date: 20140323
  Transmission Date: 20141002
  Serious: No
  Sender: FDA-Public Use
  Company Number: US-ALLERGAN-1314026US

PATIENT
  Age: 59 Year
  Sex: Female

DRUGS (1)
  1. LATISSE 0.03% [Suspect]
     Indication: PRODUCT USED FOR UNKNOWN INDICATION
     Dosage: 2 GTT, QHS
     Route: 061
     Dates: start: 20130906, end: 20130908

REACTIONS (11)
  - Ocular icterus [Recovering/Resolving]
  - Photophobia [Recovering/Resolving]
  - Abnormal sensation in eye [Recovering/Resolving]
  - Scleral hyperaemia [Recovering/Resolving]
  - Eye pruritus [Recovering/Resolving]
  - Eyelids pruritus [Recovering/Resolving]
  - Eyelids pruritus [Recovering/Resolving]
  - Eye irritation [Recovering/Resolving]
  - Eye pruritus [Recovering/Resolving]
  - Ocular hyperaemia [Recovering/Resolving]
  - Erythema of eyelid [Recovering/Resolving]
